FAERS Safety Report 5825350-3 (Version None)
Quarter: 2008Q3

REPORT INFORMATION
  Report Type: 
  Country: None (occurrence: None)
  Receive Date: 20080722
  Receipt Date: 20070820
  Transmission Date: 20090109
  Serious: Yes (Other)
  Sender: FDA-Public Use
  Company Number: 2007BI017561

PATIENT
  Age: 38 Year
  Sex: Female
  Weight: 72.5755 kg

DRUGS (3)
  1. AVONEX LYOPHILIZED [Suspect]
     Indication: MULTIPLE SCLEROSIS
     Dosage: 30 UG;QW;IM
     Route: 030
     Dates: start: 19990101, end: 20030101
  2. AVONEX [Suspect]
     Indication: MULTIPLE SCLEROSIS
     Dosage: 30 UG;QW;IM
     Route: 030
     Dates: start: 20030101, end: 20070801
  3. AVONEX [Suspect]
     Indication: MULTIPLE SCLEROSIS
     Dosage: 30 UG;QW;IM
     Route: 030
     Dates: start: 20030101, end: 20070801

REACTIONS (7)
  - ADRENAL DISORDER [None]
  - ALOPECIA [None]
  - ASTHMA [None]
  - CARDIOMYOPATHY [None]
  - HEART RATE INCREASED [None]
  - HYPOTHYROIDISM [None]
  - INFLUENZA LIKE ILLNESS [None]
